FAERS Safety Report 9557885 (Version 1)
Quarter: 2013Q3

REPORT INFORMATION
  Report Type: Spontaneous
  Country: US (occurrence: US)
  Receive Date: 20130926
  Receipt Date: 20130926
  Transmission Date: 20140515
  Serious: Yes (Other)
  Sender: FDA-Public Use
  Company Number: US-BAYER-2013-115507

PATIENT
  Age: 35 Year
  Sex: Female

DRUGS (1)
  1. CIPRO [Suspect]
     Indication: BACTERIAL INFECTION

REACTIONS (10)
  - Adverse drug reaction [None]
  - Tendon pain [None]
  - Arthralgia [None]
  - Myalgia [None]
  - Neuropathy peripheral [None]
  - Insomnia [None]
  - Ovarian cyst [None]
  - Uterine polyp [None]
  - Cervical polyp [None]
  - Pain [None]
